FAERS Safety Report 7769511-5 (Version None)
Quarter: 2011Q3

REPORT INFORMATION
  Report Type: 
  Country: None (occurrence: None)
  Receive Date: 20110922
  Receipt Date: 20110322
  Transmission Date: 20111222
  Serious: No
  Sender: FDA-Public Use
  Company Number: US-ASTRAZENECA-2011SE16578

PATIENT
  Age: 44 Year
  Sex: Female

DRUGS (1)
  1. SEROQUEL [Suspect]
     Indication: SLEEP DISORDER
     Route: 048

REACTIONS (6)
  - TOOTH EXTRACTION [None]
  - INSOMNIA [None]
  - PAIN [None]
  - OFF LABEL USE [None]
  - NASOPHARYNGITIS [None]
  - DRUG DOSE OMISSION [None]
